FAERS Safety Report 14252686 (Version 2)
Quarter: 2018Q1

REPORT INFORMATION
  Report Type: Spontaneous
  Country: US (occurrence: US)
  Receive Date: 20171205
  Receipt Date: 20180206
  Transmission Date: 20180508
  Serious: Yes (Death, Other)
  Sender: FDA-Public Use
  Company Number: US-ASTELLAS-2017US051429

PATIENT
  Age: 76 Year
  Sex: Male

DRUGS (18)
  1. TENORMIN [Concomitant]
     Active Substance: ATENOLOL
     Indication: BLOOD PRESSURE MEASUREMENT
     Dosage: 25 MG (0.5 TABLET), ONCE DAILY
     Route: 048
  2. LIPITOR [Concomitant]
     Active Substance: ATORVASTATIN CALCIUM
     Indication: BLOOD CHOLESTEROL
     Route: 048
  3. XTANDI [Suspect]
     Active Substance: ENZALUTAMIDE
     Indication: PROSTATE CANCER
     Route: 048
     Dates: start: 20160701, end: 20170615
  4. LUPRON [Concomitant]
     Active Substance: LEUPROLIDE ACETATE
     Indication: PROSTATE CANCER
     Dosage: 30 MG, EVERY 04 MONTHS
     Route: 030
  5. DELTASONE                          /00016001/ [Concomitant]
     Active Substance: DEXAMETHASONE
     Indication: PROSTATE CANCER
     Route: 048
  6. GARLIQUE [Concomitant]
     Active Substance: GARLIC
     Indication: PRODUCT USED FOR UNKNOWN INDICATION
     Dosage: UNK UNK, ONCE DAILY
     Route: 065
  7. CITRACAL + D                       /01438101/ [Concomitant]
     Indication: BONE DISORDER
     Dosage: 2 TABLETS, THRICE DAILY
     Route: 048
  8. DILTIAZEM. [Concomitant]
     Active Substance: DILTIAZEM
     Indication: BLOOD PRESSURE MEASUREMENT
     Route: 048
  9. FIBER [Concomitant]
     Active Substance: PSYLLIUM HUSK
     Indication: SUPPLEMENTATION THERAPY
     Route: 048
  10. HYDRODIURIL [Concomitant]
     Active Substance: HYDROCHLOROTHIAZIDE
     Indication: BLOOD PRESSURE MEASUREMENT
     Route: 048
  11. CARTIA XT [Concomitant]
     Active Substance: DILTIAZEM HYDROCHLORIDE
     Indication: BLOOD PRESSURE MEASUREMENT
     Route: 065
  12. AMBROTOSE [Concomitant]
     Active Substance: ALOE VERA LEAF\GLUCOSAMINE HYDROCHLORIDE\LARIX DECIDUA WOOD\TRAGACANTH
     Indication: SUPPLEMENTATION THERAPY
     Dosage: 1 TABLET, TWICE DAILY
     Route: 048
  13. ASPIRIN. [Concomitant]
     Active Substance: ASPIRIN
     Indication: CARDIAC DISORDER
     Dosage: 1 TABLET, TWICE DAILY
     Route: 048
  14. ATENOLOL. [Concomitant]
     Active Substance: ATENOLOL
     Indication: BLOOD PRESSURE MEASUREMENT
     Dosage: 25 MG (HALF), ONCE DAILY
     Route: 065
  15. TYLENOL PM [Concomitant]
     Active Substance: ACETAMINOPHEN\DIPHENHYDRAMINE
     Indication: PRODUCT USED FOR UNKNOWN INDICATION
     Dosage: UNK UNK, UNKNOWN FREQ.
     Route: 065
  16. B COMPLEX                          /00212701/ [Concomitant]
     Active Substance: NIACINAMIDE\PYRIDOXINE\RIBOFLAVIN\THIAMINE
     Indication: SUPPLEMENTATION THERAPY
     Dosage: 1 TABLET, ONCE DAILY
     Route: 048
  17. GARLIC                             /01570501/ [Concomitant]
     Active Substance: GARLIC
     Indication: SUPPLEMENTATION THERAPY
     Dosage: 1 CAPSULE, ONCE DAILY
     Route: 065
  18. PHYTOMATRIX [Concomitant]
     Indication: SUPPLEMENTATION THERAPY
     Dosage: 1 TABLET, TWICE DAILY
     Route: 065

REACTIONS (17)
  - Lethargy [Unknown]
  - Confusional state [Unknown]
  - Feeling hot [Unknown]
  - Peripheral swelling [Unknown]
  - Headache [Unknown]
  - Balance disorder [Unknown]
  - Rash [Unknown]
  - Drug ineffective [Unknown]
  - Chills [Unknown]
  - Memory impairment [Unknown]
  - Chronic kidney disease [Fatal]
  - Knee deformity [Unknown]
  - Malignant neoplasm progression [Fatal]
  - Feeling abnormal [Unknown]
  - Rhinorrhoea [Unknown]
  - Musculoskeletal stiffness [Unknown]
  - Decreased appetite [Unknown]

NARRATIVE: CASE EVENT DATE: 201611
